FAERS Safety Report 5850265-4 (Version None)
Quarter: 2008Q3

REPORT INFORMATION
  Report Type: 
  Country: None (occurrence: None)
  Receive Date: 20080819
  Receipt Date: 20080813
  Transmission Date: 20090109
  Serious: Yes (Other)
  Sender: FDA-Public Use
  Company Number: PHHY2008DE18286

PATIENT
  Sex: Male

DRUGS (1)
  1. PROVAS [Suspect]
     Indication: HYPERTENSION
     Dosage: UNK
     Dates: start: 20080804, end: 20080807

REACTIONS (2)
  - ANAPHYLACTIC REACTION [None]
  - URTICARIA THERMAL [None]
